FAERS Safety Report 5628661-X (Version None)
Quarter: 2008Q1

REPORT INFORMATION
  Report Type: 
  Country: None (occurrence: None)
  Receive Date: 20080214
  Receipt Date: 20080214
  Transmission Date: 20080703
  Serious: Yes (Life-Threatening, Hospitalization)
  Sender: FDA-Public Use
  Company Number: None

PATIENT
  Age: 80 Year
  Sex: Male

DRUGS (1)
  1. FERROUS GLUCONATE [Suspect]
     Dosage: 250MG ONCE IV
     Route: 042
     Dates: start: 20071203, end: 20071203

REACTIONS (1)
  - ANAPHYLACTIC REACTION [None]
